FAERS Safety Report 4538221-X (Version None)
Quarter: 2004Q4

REPORT INFORMATION
  Report Type: 
  Country: None (occurrence: None)
  Receive Date: 20041221
  Receipt Date: 20041206
  Transmission Date: 20050328
  Serious: Yes (Death, Life-Threatening, Hospitalization)
  Sender: FDA-Public Use
  Company Number: 105192ISR

PATIENT
  Age: 74 Year
  Sex: Female

DRUGS (7)
  1. FLUOROURACIL [Suspect]
     Indication: COLON CANCER
     Dosage: INTRAVENOUS (NOS)
     Route: 042
     Dates: start: 20040423, end: 20040831
  2. OXALIPLATIN [Suspect]
     Indication: COLON CANCER
     Dosage: 160 MILLIGRAM, INTRAVENOUS (NOS)
     Route: 042
     Dates: start: 20040423, end: 20040625
  3. FOLINIC ACID [Suspect]
     Indication: COLON CANCER
     Dosage: 750 MILLIGRAM, INTRAVENOUS (NOS)
     Route: 042
     Dates: start: 20040423, end: 20040625
  4. PRAZEPAM [Concomitant]
  5. MIANSERIN HYDROCHLORIDE [Concomitant]
  6. CITALOPRAM HYDROBROMIDE [Concomitant]
  7. METHYLPREDNISOLONE SODIUM SUCCINATE [Concomitant]

REACTIONS (7)
  - BONE MARROW DEPRESSION [None]
  - DIHYDROPYRIMIDINE DEHYDROGENASE DEFICIENCY [None]
  - DRUG TOXICITY [None]
  - FATIGUE [None]
  - GASTROINTESTINAL DISORDER [None]
  - MUCOSAL INFLAMMATION [None]
  - PANCYTOPENIA [None]
